FAERS Safety Report 21051385 (Version 1)
Quarter: 2022Q3

REPORT INFORMATION
  Report Type: Report from Study
  Country: US (occurrence: US)
  Receive Date: 20220707
  Receipt Date: 20220707
  Transmission Date: 20221026
  Serious: Yes (Hospitalization)
  Sender: FDA-Public Use
  Company Number: US-TEVA-2022-US-2053102

PATIENT
  Age: 59 Year
  Sex: Female
  Weight: 70.3 kg

DRUGS (2)
  1. PORTIA [Suspect]
     Active Substance: ETHINYL ESTRADIOL\LEVONORGESTREL
     Indication: Oral contraception
     Dosage: ETHINYLESTRADIOL 30 UG]/[LEVONORGESTREL 150UG]
     Route: 048
     Dates: start: 20191107, end: 20191206
  2. ROPSACITINIB [Suspect]
     Active Substance: ROPSACITINIB
     Indication: Oral contraception
     Route: 048
     Dates: start: 20191105, end: 20191206

REACTIONS (3)
  - Neutropenia [Recovered/Resolved]
  - Leukopenia [Recovered/Resolved]
  - Thrombocytopenia [Recovered/Resolved]

NARRATIVE: CASE EVENT DATE: 20191207
